FAERS Safety Report 11719005 (Version 1)
Quarter: 2015Q4

REPORT INFORMATION
  Report Type: Spontaneous
  Country: US (occurrence: None)
  Receive Date: 20151109
  Receipt Date: 20151109
  Transmission Date: 20160304
  Serious: No
  Sender: FDA-Public Use
  Company Number: None

PATIENT
  Age: 82 Year
  Sex: Female

DRUGS (13)
  1. SINGULAIR [Suspect]
     Active Substance: MONTELUKAST SODIUM
  2. ALBUTEROL. [Suspect]
     Active Substance: ALBUTEROL
  3. IBRANCE [Suspect]
     Active Substance: PALBOCICLIB
     Indication: NEOPLASM MALIGNANT
     Route: 048
     Dates: start: 20150723
  4. ADVAIR HFA [Concomitant]
     Active Substance: FLUTICASONE PROPIONATE\SALMETEROL XINAFOATE
  5. METOPROLOL [Suspect]
     Active Substance: METOPROLOL
  6. LETROZOLE. [Concomitant]
     Active Substance: LETROZOLE
  7. LASIX [Concomitant]
     Active Substance: FUROSEMIDE
  8. LORATADINE. [Concomitant]
     Active Substance: LORATADINE
  9. LOVASTATIN. [Concomitant]
     Active Substance: LOVASTATIN
  10. CALCIUM [Concomitant]
     Active Substance: CALCIUM
  11. IPRATROPIUM [Concomitant]
     Active Substance: IPRATROPIUM
  12. COUMADIN [Concomitant]
     Active Substance: WARFARIN SODIUM
  13. APAP/CODEINE [Suspect]
     Active Substance: ACETAMINOPHEN\CODEINE PHOSPHATE

REACTIONS (1)
  - Anaemia [None]
